FAERS Safety Report 6310898-8 (Version None)
Quarter: 2009Q3

REPORT INFORMATION
  Report Type: 
  Country: None (occurrence: None)
  Receive Date: 20090812
  Receipt Date: 20090803
  Transmission Date: 20100115
  Serious: Yes (Other)
  Sender: FDA-Public Use
  Company Number: GXKR2009GB08770

PATIENT
  Age: 52 Year
  Sex: Female
  Weight: 54 kg

DRUGS (10)
  1. ACETAMINOPHEN W/ CODEINE [Suspect]
  2. CLINDAMYCIN HCL [Suspect]
     Indication: POSTOPERATIVE CARE
     Dosage: 600 MG, INTRAVENOUS
     Dates: start: 20090707, end: 20090708
  3. ORAMORPH SR [Suspect]
     Indication: PAIN
     Dosage: 20 MG, QD, ORAL
     Route: 048
     Dates: start: 20090704, end: 20090708
  4. BISOPROLOL FUMARATE [Concomitant]
  5. CHLORPHENIRAMINE MALEATE [Concomitant]
  6. CITALOPRAM HYDROBROMIDE [Concomitant]
  7. DICLOFENAC (DICLOFENAC) [Concomitant]
  8. FERROUS FUMARATE [Concomitant]
  9. SENNA (SENNA, SENNA ALEXANDRINA) [Concomitant]
  10. SIMVASTATIN [Concomitant]

REACTIONS (2)
  - DRUG INTERACTION [None]
  - STEVENS-JOHNSON SYNDROME [None]
